FAERS Safety Report 12883467 (Version 1)
Quarter: 2016Q4

REPORT INFORMATION
  Report Type: Report from Study
  Country: US (occurrence: US)
  Receive Date: 20161025
  Receipt Date: 20161025
  Transmission Date: 20170207
  Serious: Yes (Hospitalization)
  Sender: FDA-Public Use
  Company Number: US-GILEAD-2016-0234171

PATIENT
  Age: 89 Year
  Sex: Male

DRUGS (10)
  1. PLAVIX [Concomitant]
     Active Substance: CLOPIDOGREL BISULFATE
  2. TAMSULOSIN [Concomitant]
     Active Substance: TAMSULOSIN
  3. VITAMINS WITH MINERALS [Concomitant]
     Active Substance: MINERALS\VITAMINS
  4. SENNA                              /00142201/ [Concomitant]
     Active Substance: SENNA LEAF
  5. IDELALISIB [Suspect]
     Active Substance: IDELALISIB
     Dosage: 150 MG, QD
     Route: 048
     Dates: start: 20160406, end: 20161005
  6. CARVEDILOL. [Concomitant]
     Active Substance: CARVEDILOL
  7. ASPIRIN (E.C.) [Concomitant]
     Active Substance: ASPIRIN
  8. PANTOPRAZOLE [Concomitant]
     Active Substance: PANTOPRAZOLE SODIUM
  9. IDELALISIB [Suspect]
     Active Substance: IDELALISIB
     Indication: LYMPHOMA
     Dosage: 150 MG, BID
     Route: 048
     Dates: start: 20150514, end: 20160406
  10. TYLENOL [Concomitant]
     Active Substance: ACETAMINOPHEN

REACTIONS (15)
  - Muscle spasms [Unknown]
  - Gait disturbance [Unknown]
  - Balance disorder [Unknown]
  - Dysphagia [Unknown]
  - Erythema [Unknown]
  - Gait disturbance [Unknown]
  - Dysstasia [Unknown]
  - Hand-eye coordination impaired [Unknown]
  - Skin exfoliation [Unknown]
  - Dry skin [Unknown]
  - Muscular weakness [Unknown]
  - Communication disorder [Unknown]
  - Aggression [Unknown]
  - Fall [Unknown]
  - Pain in extremity [Unknown]

NARRATIVE: CASE EVENT DATE: 20161016
